FAERS Safety Report 8775188 (Version 1)
Quarter: 2012Q4

REPORT INFORMATION
  Report Type: 
  Country: JP (occurrence: JP)
  Receive Date: 20120910
  Receipt Date: 20120910
  Transmission Date: 20130627
  Serious: Yes (Hospitalization)
  Sender: FDA-Public Use
  Company Number: JP-JHP PHARMACEUTICALS, LLC-JHP201200430

PATIENT
  Age: 78 Year
  Sex: Male

DRUGS (4)
  1. DANTRIUM [Suspect]
     Indication: TETANUS
  2. TETANUS IMMUNE GLOBULIN (HUMAN) [Concomitant]
     Dosage: 1500 IU, X 3
     Route: 042
  3. PENICILLIN G [Concomitant]
     Dosage: 1800x 10^4 daily
  4. EPERISONE HYDROCHLORIDE [Concomitant]

REACTIONS (4)
  - Drug ineffective [Unknown]
  - Musculoskeletal stiffness [Recovering/Resolving]
  - Trismus [Recovering/Resolving]
  - Dysphagia [Recovered/Resolved]
